FAERS Safety Report 24134726 (Version 5)
Quarter: 2024Q4

REPORT INFORMATION
  Report Type: Report from Study
  Country: CA (occurrence: CA)
  Receive Date: 20240725
  Receipt Date: 20241001
  Transmission Date: 20250115
  Serious: Yes (Other)
  Sender: JOHNSON AND JOHNSON
  Company Number: CA-JNJFOC-20240177271

PATIENT
  Age: 29 Year
  Sex: Female
  Weight: 53 kg

DRUGS (5)
  1. REMICADE [Suspect]
     Active Substance: INFLIXIMAB
     Indication: Crohn^s disease
     Route: 041
     Dates: start: 20240206
  2. REMICADE [Suspect]
     Active Substance: INFLIXIMAB
     Route: 041
  3. REMICADE [Suspect]
     Active Substance: INFLIXIMAB
     Route: 041
  4. REMICADE [Suspect]
     Active Substance: INFLIXIMAB
     Dosage: 10MG/KG?EXPIRY DATE: NOV-2026
     Route: 041
  5. REMICADE [Suspect]
     Active Substance: INFLIXIMAB
     Route: 041

REACTIONS (25)
  - Loss of consciousness [Recovering/Resolving]
  - Syncope [Recovered/Resolved]
  - Adrenal insufficiency [Not Recovered/Not Resolved]
  - Intestinal dilatation [Unknown]
  - Abdominal pain [Not Recovered/Not Resolved]
  - Nausea [Recovered/Resolved]
  - Tachycardia [Unknown]
  - Throat irritation [Unknown]
  - Infusion related reaction [Unknown]
  - Swelling face [Recovered/Resolved]
  - Tremor [Recovering/Resolving]
  - Head discomfort [Recovering/Resolving]
  - Tinnitus [Recovering/Resolving]
  - Poor venous access [Recovered/Resolved]
  - Palpitations [Recovering/Resolving]
  - Dizziness [Recovering/Resolving]
  - Cortisol decreased [Unknown]
  - Swelling face [Recovered/Resolved]
  - Faecal calprotectin increased [Unknown]
  - Drug level below therapeutic [Unknown]
  - Diarrhoea [Not Recovered/Not Resolved]
  - Drug ineffective [Unknown]
  - Dyspnoea [Recovered/Resolved]
  - Inappropriate schedule of product administration [Unknown]
  - Off label use [Unknown]

NARRATIVE: CASE EVENT DATE: 20240101
